FAERS Safety Report 8551894-X (Version None)
Quarter: 2012Q3

REPORT INFORMATION
  Report Type: 
  Country: None (occurrence: None)
  Receive Date: 20120730
  Receipt Date: 20120718
  Transmission Date: 20120928
  Serious: Yes (Hospitalization)
  Sender: FDA-Public Use
  Company Number: US-BRISTOL-MYERS SQUIBB COMPANY-16798902

PATIENT
  Age: 48 Year
  Sex: Female
  Weight: 95 kg

DRUGS (4)
  1. COUMADIN [Suspect]
     Indication: THROMBOSIS
     Dosage: BLISTER/BUBBLE PACK 90 PILLS, 11 YEARS.
  2. CIPROFLOXACIN HCL [Concomitant]
  3. DEXAMETHASONE [Concomitant]
  4. BENAZEPRIL HYDROCHLORIDE [Concomitant]

REACTIONS (3)
  - PRODUCT QUALITY ISSUE [None]
  - BENIGN NEOPLASM [None]
  - INTERNATIONAL NORMALISED RATIO FLUCTUATION [None]
